FAERS Safety Report 22264096 (Version 5)
Quarter: 2024Q1

REPORT INFORMATION
  Report Type: Spontaneous
  Country: FR (occurrence: FR)
  Receive Date: 20230428
  Receipt Date: 20240203
  Transmission Date: 20240410
  Serious: Yes (Other)
  Sender: FDA-Public Use
  Company Number: FR-JNJFOC-20230442067

PATIENT

DRUGS (6)
  1. ERDAFITINIB [Suspect]
     Active Substance: ERDAFITINIB
     Indication: Transitional cell carcinoma
     Dosage: NOMINAL TEMPORARY USE AUTHORISATION
     Route: 065
     Dates: start: 20230130
  2. ERDAFITINIB [Suspect]
     Active Substance: ERDAFITINIB
     Dosage: TREATMENT WAS SUSPENDED FOR 3 WEEKS
     Route: 065
     Dates: start: 20230228, end: 20230324
  3. ERDAFITINIB [Suspect]
     Active Substance: ERDAFITINIB
     Route: 065
     Dates: start: 20230411, end: 20230601
  4. ERDAFITINIB [Suspect]
     Active Substance: ERDAFITINIB
     Dosage: RESUMED IN THE WEEK OF 12/06/2023 AT A DOSE OF 5MG/DAY
     Route: 065
     Dates: start: 202306, end: 20231002
  5. ERDAFITINIB [Suspect]
     Active Substance: ERDAFITINIB
     Route: 065
     Dates: start: 20231019
  6. ERDAFITINIB [Suspect]
     Active Substance: ERDAFITINIB
     Route: 065

REACTIONS (14)
  - Retinal depigmentation [Unknown]
  - Retinal detachment [Unknown]
  - Retinal injury [Unknown]
  - Tendon disorder [Unknown]
  - Osteoarthritis [Unknown]
  - Asthenia [Unknown]
  - Mucosal inflammation [Unknown]
  - Pruritus [Unknown]
  - Weight decreased [Unknown]
  - Nail toxicity [Unknown]
  - Nail disorder [Unknown]
  - Diarrhoea [Unknown]
  - Decreased appetite [Unknown]
  - Drug intolerance [Unknown]

NARRATIVE: CASE EVENT DATE: 20230101
